FAERS Safety Report 6084170-8 (Version None)
Quarter: 2009Q1

REPORT INFORMATION
  Report Type: 
  Country: None (occurrence: None)
  Receive Date: 20090219
  Receipt Date: 20090209
  Transmission Date: 20090719
  Serious: Yes (Death, Other)
  Sender: FDA-Public Use
  Company Number: US-TEVA-185394USA

PATIENT
  Age: 21 Year
  Sex: Female

DRUGS (6)
  1. DOXORUBICIN HYDROCHLORIDE 10 MG/ML, 20 MG/ML, 50 MG/ML + 150 MG/ML POW [Suspect]
     Indication: EWING'S SARCOMA
     Dosage: 8.1MG/M2/WK
  2. ETOPOSIDE [Suspect]
     Indication: EWING'S SARCOMA
     Dosage: 98.8MG/M2/WK
  3. IFOSFAMIDE [Suspect]
     Indication: EWING'S SARCOMA
     Dosage: 1.3G/M2/WK
  4. CISPLATIN [Suspect]
  5. CYCLOPHOSPHAMIDE [Suspect]
     Indication: EWING'S SARCOMA
     Dosage: 0.36G/M2/WK
  6. METHOTREXATE [Suspect]

REACTIONS (2)
  - EXTRASKELETAL OSTEOSARCOMA [None]
  - OSTEOSARCOMA METASTATIC [None]
